FAERS Safety Report 8423657-7 (Version None)
Quarter: 2012Q2

REPORT INFORMATION
  Report Type: 
  Country: None (occurrence: None)
  Receive Date: 20120608
  Receipt Date: 20120607
  Transmission Date: 20120825
  Serious: Yes (Death)
  Sender: FDA-Public Use
  Company Number: PHHY2012GB048743

PATIENT
  Age: 42 Year
  Sex: Female

DRUGS (3)
  1. PACLITAXEL [Suspect]
     Indication: BREAST CANCER METASTATIC
  2. RADIOTHERAPY [Concomitant]
  3. AVASTIN [Suspect]
     Indication: BREAST CANCER METASTATIC

REACTIONS (1)
  - PULMONARY EMBOLISM [None]
